FAERS Safety Report 20462243 (Version 1)
Quarter: 2022Q1

REPORT INFORMATION
  Report Type: Spontaneous
  Country: CZ (occurrence: None)
  Receive Date: 20220211
  Receipt Date: 20220211
  Transmission Date: 20220423
  Serious: Yes (Life-Threatening)
  Sender: FDA-Public Use
  Company Number: 2022A060604

PATIENT
  Age: 38 Year
  Sex: Female
  Weight: 65 kg

DRUGS (2)
  1. PULMICORT TURBUHALER [Suspect]
     Active Substance: BUDESONIDE
     Dosage: 1.0DF UNKNOWN
     Route: 055
     Dates: start: 20211019, end: 20211019
  2. ACYLPYRIN [Concomitant]
     Indication: COVID-19
     Dosage: 2-3 TABLETS DAILY, THEN 1 TABLET AT NIGHT
     Route: 048
     Dates: start: 20211004, end: 20211031

REACTIONS (2)
  - Dyspnoea [Recovered/Resolved]
  - Loss of consciousness [Recovered/Resolved]

NARRATIVE: CASE EVENT DATE: 20211019
